FAERS Safety Report 6081658-0 (Version None)
Quarter: 2009Q1

REPORT INFORMATION
  Report Type: 
  Country: None (occurrence: None)
  Receive Date: 20090218
  Receipt Date: 20090211
  Transmission Date: 20090719
  Serious: Yes (Other)
  Sender: FDA-Public Use
  Company Number: US-ASTRAZENECA-2009UW03961

PATIENT
  Age: 74 Year
  Sex: Female

DRUGS (1)
  1. SYMBICORT [Suspect]
     Dosage: TWO PUFFS BID
     Route: 055

REACTIONS (3)
  - BREAST CANCER [None]
  - DIABETES MELLITUS [None]
  - DRUG DELIVERY SYSTEM MALFUNCTION [None]
